FAERS Safety Report 8603155-8 (Version None)
Quarter: 2012Q3

REPORT INFORMATION
  Report Type: 
  Country: None (occurrence: None)
  Receive Date: 20120817
  Receipt Date: 20120815
  Transmission Date: 20120928
  Serious: Yes (Other)
  Sender: FDA-Public Use
  Company Number: CN-ROCHE-1102487

PATIENT
  Age: 30 Year
  Sex: Female
  Weight: 58 kg

DRUGS (5)
  1. DOCETAXEL [Concomitant]
     Indication: BREAST CANCER
     Route: 041
     Dates: start: 20120201, end: 20120601
  2. HERCEPTIN [Suspect]
     Indication: BREAST CANCER
     Route: 041
     Dates: start: 20120201
  3. XELODA [Suspect]
     Indication: BREAST CANCER
     Route: 048
     Dates: start: 20120201, end: 20120601
  4. VINORELBINE [Concomitant]
     Indication: BREAST CANCER
  5. CISPLATIN [Concomitant]
     Indication: BREAST CANCER

REACTIONS (1)
  - METASTASES TO BREAST [None]
